FAERS Safety Report 9403186 (Version 1)
Quarter: 2013Q3

REPORT INFORMATION
  Report Type: Spontaneous
  Country: US (occurrence: None)
  Receive Date: 20130715
  Receipt Date: 20130715
  Transmission Date: 20140515
  Serious: Yes (Disabling)
  Sender: FDA-Public Use
  Company Number: None

PATIENT
  Age: 85 Year
  Sex: Female
  Weight: 55.34 kg

DRUGS (1)
  1. LEVOFLOXACIN [Suspect]
     Indication: NASOPHARYNGITIS
     Dosage: 500 MG 1 TABLET DAILY ORAL
     Route: 048

REACTIONS (6)
  - Rash [None]
  - Pain [None]
  - Infection [None]
  - Contusion [None]
  - Paraesthesia [None]
  - Hypoaesthesia [None]
